FAERS Safety Report 7484637-1 (Version None)
Quarter: 2011Q2

REPORT INFORMATION
  Report Type: 
  Country: None (occurrence: None)
  Receive Date: 20110517
  Receipt Date: 20100909
  Transmission Date: 20111010
  Serious: Yes (Other)
  Sender: FDA-Public Use
  Company Number: US-BAYER-200942399NA

PATIENT
  Age: 26 Year
  Sex: Female
  Weight: 45.455 kg

DRUGS (20)
  1. YAZ [Suspect]
     Indication: PREMENSTRUAL SYNDROME
  2. VALTREX [Concomitant]
     Indication: HERPES SIMPLEX
     Dosage: DAILY
     Route: 048
     Dates: start: 20040501
  3. OVCON-35 [Concomitant]
     Indication: CONTRACEPTION
  4. ADVAIR DISKUS 100/50 [Concomitant]
     Indication: ASTHMA
     Dates: start: 20070301
  5. YASMIN [Suspect]
     Indication: ACNE
     Dosage: UNK
     Dates: start: 20040901, end: 20050615
  6. YAZ [Suspect]
     Indication: ACNE
     Dates: start: 20080501, end: 20090801
  7. MOTRIN [Concomitant]
  8. YASMIN [Suspect]
  9. SINGULAIR [Concomitant]
     Indication: ASTHMA
     Dates: start: 20070301
  10. PREVACID [Concomitant]
     Indication: GASTROOESOPHAGEAL REFLUX DISEASE
     Dates: start: 20080301, end: 20090801
  11. OVCON-35 [Concomitant]
     Indication: ACNE
     Dosage: UNK
  12. NEXIUM [Concomitant]
     Indication: GASTROOESOPHAGEAL REFLUX DISEASE
     Dates: start: 20080301, end: 20090801
  13. ORTHO TRI-CYCLEN [Concomitant]
  14. YASMIN [Suspect]
     Indication: PREMENSTRUAL SYNDROME
     Route: 048
     Dates: start: 20020101
  15. SPIRONOLACTONE [Concomitant]
     Indication: ACNE CYSTIC
     Dates: start: 20060901, end: 20100501
  16. PROVERA [Concomitant]
     Dosage: PROVERA X 10
  17. YASMIN [Suspect]
     Indication: HERPES SIMPLEX
     Dates: end: 20060701
  18. YAZ [Suspect]
     Indication: CONTRACEPTION
  19. ADVIL LIQUI-GELS [Concomitant]
  20. OVCON-35 [Concomitant]
     Indication: POLYCYSTIC OVARIES

REACTIONS (15)
  - VOMITING [None]
  - PAIN [None]
  - ABDOMINAL PAIN UPPER [None]
  - ABDOMINAL TENDERNESS [None]
  - CHOLECYSTITIS CHRONIC [None]
  - EPIGASTRIC DISCOMFORT [None]
  - ABDOMINAL DISCOMFORT [None]
  - GASTROOESOPHAGEAL REFLUX DISEASE [None]
  - ABDOMINAL PAIN [None]
  - NAUSEA [None]
  - SENSATION OF FOREIGN BODY [None]
  - BILIARY DYSKINESIA [None]
  - WEIGHT INCREASED [None]
  - PELVIC PAIN [None]
  - MENSTRUATION IRREGULAR [None]
